FAERS Safety Report 6519701-4 (Version None)
Quarter: 2009Q4

REPORT INFORMATION
  Report Type: 
  Country: None (occurrence: None)
  Receive Date: 20091228
  Receipt Date: 20091216
  Transmission Date: 20100525
  Serious: Yes (Death)
  Sender: FDA-Public Use
  Company Number: JP-PFIZER INC-2009311850

PATIENT
  Sex: Male

DRUGS (3)
  1. GENOTROPIN [Suspect]
     Indication: GROWTH HORMONE DEFICIENCY
     Dosage: 0.3 MG, 1X/DAY
     Route: 058
     Dates: start: 20091109, end: 20091207
  2. CONTOL [Concomitant]
     Dosage: UNK
  3. DESMOPRESSIN [Concomitant]
     Indication: HYPOPITUITARISM
     Dosage: UNK

REACTIONS (1)
  - RESPIRATORY FAILURE [None]
